FAERS Safety Report 5468304-1 (Version None)
Quarter: 2007Q3

REPORT INFORMATION
  Report Type: 
  Country: None (occurrence: None)
  Receive Date: 20070924
  Receipt Date: 20070912
  Transmission Date: 20080115
  Serious: Yes (Hospitalization, Other)
  Sender: FDA-Public Use
  Company Number: GXKR2007GB07951

PATIENT
  Age: 39 Year
  Sex: Male
  Weight: 98 kg

DRUGS (2)
  1. DIAZEPAM [Suspect]
     Indication: ANXIETY
     Dosage: 5 MG, ORAL
     Route: 048
     Dates: start: 20060101
  2. STELAZINE [Suspect]
     Indication: ANXIETY
     Dosage: 20 MG, DAILY, ORAL
     Route: 048
     Dates: start: 20060101, end: 20070801

REACTIONS (4)
  - CONVULSION [None]
  - DRUG INTERACTION [None]
  - LOSS OF CONSCIOUSNESS [None]
  - MUSCLE SPASMS [None]
